FAERS Safety Report 5525321-0 (Version None)
Quarter: 2007Q4

REPORT INFORMATION
  Report Type: 
  Country: None (occurrence: None)
  Receive Date: 20071120
  Receipt Date: 20071120
  Transmission Date: 20080405
  Serious: Yes (Hospitalization)
  Sender: FDA-Public Use
  Company Number: None

PATIENT
  Age: 65 Year
  Sex: Female
  Weight: 75 kg

DRUGS (3)
  1. CARBOPLATIN [Suspect]
     Dosage: 628 MG
  2. TAXOTERE [Suspect]
     Dosage: 139 MG
  3. TAXOL [Suspect]
     Dosage: 111 MG

REACTIONS (14)
  - ABDOMINAL ABSCESS [None]
  - ALANINE AMINOTRANSFERASE INCREASED [None]
  - ASPARTATE AMINOTRANSFERASE INCREASED [None]
  - BLOOD CHLORIDE DECREASED [None]
  - BLOOD MAGNESIUM DECREASED [None]
  - BLOOD POTASSIUM DECREASED [None]
  - BLOOD SODIUM DECREASED [None]
  - ESCHERICHIA INFECTION [None]
  - FEBRILE NEUTROPENIA [None]
  - HAEMATOCRIT DECREASED [None]
  - HAEMOGLOBIN DECREASED [None]
  - MORGANELLA INFECTION [None]
  - PSEUDOMONAS INFECTION [None]
  - WHITE BLOOD CELL COUNT DECREASED [None]
